FAERS Safety Report 6192333-6 (Version None)
Quarter: 2009Q2

REPORT INFORMATION
  Report Type: 
  Country: None (occurrence: None)
  Receive Date: 20090518
  Receipt Date: 20070814
  Transmission Date: 20091009
  Serious: Yes (Other)
  Sender: FDA-Public Use
  Company Number: US-ASTRAZENECA-2006UW08065

PATIENT
  Age: 408 Month
  Sex: Female
  Weight: 95.3 kg

DRUGS (22)
  1. SEROQUEL [Suspect]
     Indication: DEPRESSION
     Dosage: 100 MG 50 MG
     Route: 048
     Dates: start: 20050501
  2. SEROQUEL [Suspect]
     Indication: SCHIZOPHRENIA
     Dosage: 100 MG 50 MG
     Route: 048
     Dates: start: 20050501
  3. SEROQUEL [Suspect]
     Indication: AFFECTIVE DISORDER
     Dosage: 100 MG 50 MG
     Route: 048
     Dates: start: 20050501
  4. SEROQUEL [Suspect]
     Indication: SLEEP DISORDER
     Dosage: 100 MG 50 MG
     Route: 048
     Dates: start: 20050501
  5. SEROQUEL [Suspect]
     Dosage: 50 - 200 MG
     Route: 048
     Dates: start: 20050407
  6. SEROQUEL [Suspect]
     Dosage: 50 - 200 MG
     Route: 048
     Dates: start: 20050407
  7. SEROQUEL [Suspect]
     Dosage: 50 - 200 MG
     Route: 048
     Dates: start: 20050407
  8. SEROQUEL [Suspect]
     Dosage: 50 - 200 MG
     Route: 048
     Dates: start: 20050407
  9. GEODON [Concomitant]
     Route: 065
     Dates: start: 20000101, end: 20010101
  10. RISPERDAL [Concomitant]
     Route: 065
     Dates: start: 19980301, end: 20000201
  11. ZYPREXA [Concomitant]
     Route: 065
     Dates: start: 19980101
  12. PROZAC [Concomitant]
     Route: 065
  13. EFFEXOR [Concomitant]
     Route: 065
  14. LISINOPRIL [Concomitant]
     Route: 065
  15. TOPAMEX [Concomitant]
     Indication: ANXIETY
     Dosage: 25 - 300 MG
     Route: 048
  16. KLONOPIN [Concomitant]
     Indication: ANXIETY
     Dosage: 0.5 - 1 MG
     Route: 048
  17. HYDROCODONE BITARTRATE [Concomitant]
     Dosage: 7.5
     Route: 048
  18. APAP TAB [Concomitant]
     Route: 048
  19. ATENOLOL [Concomitant]
     Route: 048
  20. METFORMIN HCL [Concomitant]
     Route: 048
  21. PREVACID [Concomitant]
     Route: 048
  22. ALBUTEROL [Concomitant]
     Route: 055

REACTIONS (2)
  - DIABETES MELLITUS [None]
  - PANIC DISORDER WITHOUT AGORAPHOBIA [None]
